FAERS Safety Report 10654346 (Version 5)
Quarter: 2016Q3

REPORT INFORMATION
  Report Type: Report from Study
  Country: BR (occurrence: BR)
  Receive Date: 20141216
  Receipt Date: 20160927
  Transmission Date: 20161109
  Serious: Yes (Life-Threatening, Hospitalization, Other)
  Sender: FDA-Public Use
  Company Number: BR-ROCHE-1507350

PATIENT
  Age: 71 Year
  Sex: Female
  Weight: 53 kg

DRUGS (11)
  1. ONBRIZE [Concomitant]
     Active Substance: INDACATEROL MALEATE
     Indication: ASTHMA
     Dosage: FOR 4 MONTHS
     Route: 055
  2. OMEPRAZOLE. [Concomitant]
     Active Substance: OMEPRAZOLE
     Indication: ABDOMINAL DISCOMFORT
     Dosage: 20 MG, QD
     Route: 048
  3. LASIX [Concomitant]
     Active Substance: FUROSEMIDE
     Indication: DIURETIC THERAPY
     Dosage: 1 DF, QD
     Route: 065
     Dates: start: 20141013
  4. XOLAIR [Suspect]
     Active Substance: OMALIZUMAB
     Dosage: UNK
     Route: 058
     Dates: start: 20151018
  5. SERETIDE [Concomitant]
     Active Substance: FLUTICASONE PROPIONATE\SALMETEROL XINAFOATE
     Indication: ASTHMA
     Dosage: 50/250 UG
     Route: 055
  6. MAREVAN [Concomitant]
     Active Substance: WARFARIN SODIUM
     Indication: COAGULOPATHY
     Dosage: 3.75 MG, QD
     Route: 048
     Dates: start: 20141013
  7. PURAN [Concomitant]
     Active Substance: LEVOTHYROXINE SODIUM
     Indication: HYPOTHYROIDISM
     Dosage: 75 MG, QD
     Route: 048
  8. XOLAIR [Suspect]
     Active Substance: OMALIZUMAB
     Indication: ASTHMA
     Dosage: 300 MG (2 DF)
     Route: 058
     Dates: start: 20140617
  9. SPIRIVA [Concomitant]
     Active Substance: TIOTROPIUM BROMIDE MONOHYDRATE
     Indication: ASTHMA
     Dosage: 2 SPRAYS (JETS), QD (MORNING)
     Route: 055
     Dates: start: 2013
  10. MAREVAN [Concomitant]
     Active Substance: WARFARIN SODIUM
     Dosage: 2.5 MG, (1 TABLET AND HALF PER DAY)
     Route: 048
     Dates: start: 201510
  11. XOLAIR [Suspect]
     Active Substance: OMALIZUMAB
     Route: 058

REACTIONS (8)
  - Apparent death [Recovering/Resolving]
  - Thrombosis [Recovered/Resolved]
  - Coagulation time shortened [Recovered/Resolved]
  - Pulmonary embolism [Unknown]
  - Immune system disorder [Recovering/Resolving]
  - Influenza [Recovering/Resolving]
  - Pulmonary embolism [Unknown]
  - Weight decreased [Recovering/Resolving]

NARRATIVE: CASE EVENT DATE: 20141012
